FAERS Safety Report 14605269 (Version 1)
Quarter: 2018Q1

REPORT INFORMATION
  Report Type: Spontaneous
  Country: BR (occurrence: BR)
  Receive Date: 20180306
  Receipt Date: 20180306
  Transmission Date: 20180509
  Serious: Yes (Death, Hospitalization, Other)
  Sender: FDA-Public Use
  Company Number: BR-PFIZER INC-2018082198

PATIENT
  Sex: Female
  Weight: 46 kg

DRUGS (1)
  1. TOFACITINIB CITRATE [Suspect]
     Active Substance: TOFACITINIB CITRATE
     Indication: RHEUMATOID ARTHRITIS
     Dosage: 5 MG, 2X/DAY (5 MG EACH 12 HOURS)
     Dates: start: 201709

REACTIONS (3)
  - Disease recurrence [Unknown]
  - Pneumonia [Unknown]
  - Respiratory failure [Fatal]

NARRATIVE: CASE EVENT DATE: 2017
